FAERS Safety Report 11723612 (Version 2)
Quarter: 2015Q4

REPORT INFORMATION
  Report Type: Report from Study
  Country: US (occurrence: US)
  Receive Date: 20151111
  Receipt Date: 20151201
  Transmission Date: 20160304
  Serious: Yes (Hospitalization)
  Sender: FDA-Public Use
  Company Number: US-EXELIXIS-CABO-15005779

PATIENT
  Age: 51 Year
  Sex: Male

DRUGS (14)
  1. CELEBREX [Concomitant]
     Active Substance: CELECOXIB
  2. CYMBALTA [Concomitant]
     Active Substance: DULOXETINE HYDROCHLORIDE
  3. BENADRYL [Concomitant]
     Active Substance: DIPHENHYDRAMINE HYDROCHLORIDE
  4. CARDURA [Concomitant]
     Active Substance: DOXAZOSIN MESYLATE
  5. FENTANYL. [Concomitant]
     Active Substance: FENTANYL
  6. SUBSYS [Concomitant]
     Active Substance: FENTANYL
  7. SYNTHROID [Concomitant]
     Active Substance: LEVOTHYROXINE SODIUM
  8. OXYCODON [Concomitant]
     Active Substance: OXYCODONE
  9. OXYCONTIN [Concomitant]
     Active Substance: OXYCODONE HYDROCHLORIDE
  10. COMETRIQ [Suspect]
     Active Substance: CABOZANTINIB S-MALATE
     Indication: MEDULLARY THYROID CANCER
     Dosage: 80 MG, QD
     Route: 048
     Dates: start: 20150704, end: 20150824
  11. METOPROLOL [Concomitant]
     Active Substance: METOPROLOL
  12. MIRALAX [Concomitant]
     Active Substance: POLYETHYLENE GLYCOL 3350
  13. COMETRIQ [Suspect]
     Active Substance: CABOZANTINIB S-MALATE
     Dosage: 20 MG, QD
     Route: 048
     Dates: start: 20150825
  14. MOBIC [Concomitant]
     Active Substance: MELOXICAM

REACTIONS (2)
  - Delusion [Recovered/Resolved]
  - Drug interaction [Recovered/Resolved]

NARRATIVE: CASE EVENT DATE: 2015
